FAERS Safety Report 6660576-0 (Version None)
Quarter: 2010Q1

REPORT INFORMATION
  Report Type: 
  Country: None (occurrence: None)
  Receive Date: 20100331
  Receipt Date: 20100323
  Transmission Date: 20100710
  Serious: Yes (Other)
  Sender: FDA-Public Use
  Company Number: DE-BRISTOL-MYERS SQUIBB COMPANY-15029515

PATIENT
  Age: 60 Year
  Sex: Male

DRUGS (1)
  1. PRAVASIN PROTECT [Suspect]

REACTIONS (1)
  - TENDON RUPTURE [None]
